FAERS Safety Report 5077692-X (Version None)
Quarter: 2006Q3

REPORT INFORMATION
  Report Type: 
  Country: None (occurrence: None)
  Receive Date: 20060807
  Receipt Date: 20060728
  Transmission Date: 20061208
  Serious: Yes (Death, Other)
  Sender: FDA-Public Use
  Company Number: 2006-07-1987

PATIENT
  Sex: Male

DRUGS (2)
  1. PEG-INTRON [Suspect]
     Dosage: SUBCUTANEOUS
     Route: 058
     Dates: start: 20060501
  2. REBETOL [Suspect]
     Dosage: ORAL
     Route: 048
     Dates: start: 20060501

REACTIONS (5)
  - EPILEPSY [None]
  - HEPATIC FAILURE [None]
  - PARALYSIS [None]
  - RENAL FAILURE [None]
  - STATUS EPILEPTICUS [None]
